FAERS Safety Report 19559677 (Version 2)
Quarter: 2025Q1

REPORT INFORMATION
  Report Type: Spontaneous
  Country: US (occurrence: US)
  Receive Date: 20210714
  Receipt Date: 20250114
  Transmission Date: 20250408
  Serious: No
  Sender: SK LIFE SCIENCE
  Company Number: US-SK LIFE SCIENCE, INC-SKPVG-2020-000737

PATIENT

DRUGS (10)
  1. XCOPRI [Suspect]
     Active Substance: CENOBAMATE
     Indication: Partial seizures
     Dosage: 25 MILLIGRAM, QD TABLETS
     Route: 048
     Dates: start: 20201113
  2. XCOPRI [Suspect]
     Active Substance: CENOBAMATE
     Indication: Seizure
     Dosage: 200 MILLIGRAM, QD
     Route: 048
  3. XCOPRI [Suspect]
     Active Substance: CENOBAMATE
     Dosage: 250 MILLIGRAM, ONCE DAILY
     Route: 048
     Dates: end: 202406
  4. XCOPRI [Suspect]
     Active Substance: CENOBAMATE
     Dosage: CUTTING A 100MG TAB AND THEN TAKING A HALF-TABLET OF 100MG ALONG WITH A 150MG TABLET TO MAKE 200MG
     Route: 048
     Dates: start: 202406
  5. ROBINUL [Concomitant]
     Active Substance: GLYCOPYRROLATE
     Indication: Product used for unknown indication
     Route: 065
  6. BUDESONIDE [Concomitant]
     Active Substance: BUDESONIDE
     Indication: Product used for unknown indication
     Dosage: 3MG CAPSULE ONCE IN THE MORNING
     Route: 065
  7. ONFI [Concomitant]
     Active Substance: CLOBAZAM
     Indication: Seizure
     Dosage: 10MG, ONE IN THE MORNING AND ONE AT NIGHT
     Route: 065
  8. ZONISAMIDE [Concomitant]
     Active Substance: ZONISAMIDE
     Indication: Seizure
     Route: 065
  9. ROPINIROLE [Concomitant]
     Active Substance: ROPINIROLE
     Indication: Restless legs syndrome
     Route: 065
  10. TRAZODONE [Concomitant]
     Active Substance: TRAZODONE HYDROCHLORIDE
     Indication: Product used for unknown indication
     Dosage: 5MG IN THE EVENING
     Route: 065

REACTIONS (8)
  - Anger [Recovered/Resolved]
  - Partial seizures [Unknown]
  - Impaired driving ability [Unknown]
  - Wrong technique in product usage process [Unknown]
  - Memory impairment [Recovered/Resolved]
  - Depression [Recovering/Resolving]
  - Depression [Recovered/Resolved]
  - Mood altered [Recovered/Resolved]

NARRATIVE: CASE EVENT DATE: 20201113
